FAERS Safety Report 20483093 (Version 4)
Quarter: 2022Q1

REPORT INFORMATION
  Report Type: Report from Study
  Country: CA (occurrence: CA)
  Receive Date: 20220217
  Receipt Date: 20220323
  Transmission Date: 20220424
  Serious: Yes (Hospitalization, Other)
  Sender: FDA-Public Use
  Company Number: CA-Taiho Oncology Inc-EU-2022-00413

PATIENT
  Age: 57 Year
  Sex: Female
  Weight: 65.9 kg

DRUGS (1)
  1. LONSURF [Suspect]
     Active Substance: TIPIRACIL HYDROCHLORIDE\TRIFLURIDINE
     Indication: Colorectal cancer metastatic
     Dosage: DOSE AND FREQUENCY UNKNOWN. CYCLE 1
     Route: 048
     Dates: start: 20220210, end: 20220311

REACTIONS (9)
  - Dehydration [Unknown]
  - Jaundice [Unknown]
  - Haemoglobin decreased [Unknown]
  - Limb discomfort [Unknown]
  - Constipation [Unknown]
  - Peripheral swelling [Unknown]
  - Disease progression [Unknown]
  - Fatigue [Unknown]
  - Abdominal pain [Unknown]

NARRATIVE: CASE EVENT DATE: 20220201
